FAERS Safety Report 8888122 (Version 1)
Quarter: 2012Q4

REPORT INFORMATION
  Report Type: 
  Country: BR (occurrence: BR)
  Receive Date: 20121106
  Receipt Date: 20121106
  Transmission Date: 20130627
  Serious: Yes (Disabling, Other)
  Sender: FDA-Public Use
  Company Number: BR-BAYER-2012-116216

PATIENT
  Age: 16 Year
  Sex: Female

DRUGS (1)
  1. BETAFERON [Suspect]
     Indication: MULTIPLE SCLEROSIS
     Dosage: 0.75 ml, QOD
     Route: 058
     Dates: start: 2007, end: 201202

REACTIONS (6)
  - Multiple sclerosis relapse [Recovered/Resolved]
  - Syncope [Recovered/Resolved]
  - Motor dysfunction [Recovering/Resolving]
  - Unevaluable event [Recovering/Resolving]
  - Ligament sprain [Recovering/Resolving]
  - Off label use [None]
